FAERS Safety Report 7126345-2 (Version None)
Quarter: 2010Q4

REPORT INFORMATION
  Report Type: 
  Country: None (occurrence: None)
  Receive Date: 20101129
  Receipt Date: 20101118
  Transmission Date: 20110411
  Serious: Yes (Other)
  Sender: FDA-Public Use
  Company Number: FR-JNJFOC-20100706017

PATIENT
  Sex: Male
  Weight: 80 kg

DRUGS (9)
  1. DAKTARIN [Suspect]
     Route: 002
     Dates: start: 20100708, end: 20100718
  2. DAKTARIN [Suspect]
     Indication: MOUTH ULCERATION
     Route: 002
     Dates: start: 20100708, end: 20100718
  3. SINTROM [Interacting]
     Indication: PRODUCT USED FOR UNKNOWN INDICATION
     Dosage: 1/4 IN THE EVENING
     Route: 048
     Dates: end: 20100721
  4. MINISINTROM [Interacting]
     Indication: ILL-DEFINED DISORDER
     Dosage: 1/4 IN THE EVENING
     Route: 048
  5. OMEPRAZOLE [Concomitant]
     Indication: ILL-DEFINED DISORDER
  6. HYZAAR [Concomitant]
     Indication: ILL-DEFINED DISORDER
  7. EZETROL [Concomitant]
     Indication: ILL-DEFINED DISORDER
  8. LERCANIDIPINE [Concomitant]
     Indication: ILL-DEFINED DISORDER
  9. DIFFU K [Concomitant]
     Indication: ILL-DEFINED DISORDER

REACTIONS (3)
  - BLOOD URINE PRESENT [None]
  - DRUG INTERACTION [None]
  - GINGIVAL BLEEDING [None]
